FAERS Safety Report 11368744 (Version 2)
Quarter: 2016Q2

REPORT INFORMATION
  Report Type: Spontaneous
  Country: US (occurrence: US)
  Receive Date: 20150812
  Receipt Date: 20160420
  Transmission Date: 20160815
  Serious: No
  Sender: FDA-Public Use
  Company Number: US-009507513-1508USA004483

PATIENT
  Age: 48 Year
  Sex: Female
  Weight: 69 kg

DRUGS (6)
  1. GRASTEK [Suspect]
     Active Substance: PHLEUM PRATENSE POLLEN
     Indication: RHINITIS ALLERGIC
     Dosage: 1 DF, QD
     Route: 048
     Dates: start: 20150731, end: 20150731
  2. GRASTEK [Suspect]
     Active Substance: PHLEUM PRATENSE POLLEN
     Dosage: 1 DF, QD
     Route: 048
     Dates: start: 20150803, end: 20150803
  3. CLARITINE [Concomitant]
     Active Substance: LORATADINE
     Indication: ANTIALLERGIC THERAPY
     Dosage: 40 MG, DAILY AS NEEDED (PRN)
     Route: 048
  4. GRASTEK [Suspect]
     Active Substance: PHLEUM PRATENSE POLLEN
     Dosage: 1 DF, QD
     Route: 048
     Dates: start: 20150804, end: 20150804
  5. GRASTEK [Suspect]
     Active Substance: PHLEUM PRATENSE POLLEN
     Indication: SEASONAL ALLERGY
     Dosage: 1 DF, QD
     Route: 048
     Dates: start: 20150730, end: 20150730
  6. CLARITINE [Concomitant]
     Active Substance: LORATADINE
     Indication: ALLERGY PROPHYLAXIS

REACTIONS (16)
  - Upper-airway cough syndrome [Recovered/Resolved]
  - Paraesthesia ear [Recovered/Resolved]
  - Head discomfort [Recovered/Resolved]
  - Vertigo [Recovered/Resolved]
  - Paraesthesia ear [Recovered/Resolved]
  - Head discomfort [Recovered/Resolved]
  - Ear pruritus [Recovered/Resolved]
  - Dizziness [Recovered/Resolved]
  - Ear pruritus [Recovered/Resolved]
  - Paraesthesia oral [Recovered/Resolved]
  - Headache [Recovered/Resolved]
  - Pharyngeal paraesthesia [Recovered/Resolved]
  - Paraesthesia oral [Recovered/Resolved]
  - Dizziness [Recovered/Resolved]
  - Paraesthesia oral [Recovered/Resolved]
  - Dizziness [Recovered/Resolved]

NARRATIVE: CASE EVENT DATE: 20150730
